FAERS Safety Report 21627441 (Version 1)
Quarter: 2022Q4

REPORT INFORMATION
  Report Type: Spontaneous
  Country: US (occurrence: None)
  Receive Date: 20221121
  Receipt Date: 20221121
  Transmission Date: 20230113
  Serious: Yes (unspecified)
  Sender: FDA-Public Use
  Company Number: None

PATIENT
  Age: 82 Year
  Sex: Female
  Weight: 51.26 kg

DRUGS (14)
  1. EVUSHELD [Suspect]
     Active Substance: CILGAVIMAB\TIXAGEVIMAB
     Indication: Immunodeficiency
     Dosage: OTHER FREQUENCY : 1;?
     Route: 030
     Dates: start: 20221103, end: 20221103
  2. EVUSHELD [Suspect]
     Active Substance: CILGAVIMAB\TIXAGEVIMAB
     Indication: COVID-19
  3. Allegra 180mg [Concomitant]
  4. ASPIRIN [Concomitant]
     Active Substance: ASPIRIN
  5. METOPROLOL TARTRATE [Concomitant]
     Active Substance: METOPROLOL TARTRATE
  6. VITAMIN D3 [Concomitant]
     Active Substance: CHOLECALCIFEROL
  7. Ipratropium Bromide Nasal Soln [Concomitant]
  8. Nitroglycerine Sublingual Tabs [Concomitant]
  9. Erythromycin Ophth Oint [Concomitant]
  10. ZINC [Concomitant]
     Active Substance: ZINC
  11. PROBIOTICS NOS [Concomitant]
     Active Substance: PROBIOTICS NOS
  12. MAGNESIUM [Concomitant]
     Active Substance: MAGNESIUM
  13. VITAMIN C [Concomitant]
     Active Substance: ASCORBIC ACID
  14. VITAMINS [Concomitant]
     Active Substance: VITAMINS

REACTIONS (6)
  - Pruritus [None]
  - Dizziness [None]
  - Urinary tract infection [None]
  - Epistaxis [None]
  - Rhinorrhoea [None]
  - Rhinalgia [None]

NARRATIVE: CASE EVENT DATE: 20221103
